FAERS Safety Report 19692005 (Version 1)
Quarter: 2021Q3

REPORT INFORMATION
  Report Type: Report from Study
  Country: US (occurrence: US)
  Receive Date: 20210812
  Receipt Date: 20210812
  Transmission Date: 20211014
  Serious: Yes (Other)
  Sender: FDA-Public Use
  Company Number: US-JNJFOC-20210810525

PATIENT
  Sex: Male

DRUGS (6)
  1. SPRAVATO [Suspect]
     Active Substance: ESKETAMINE
     Dosage: 84 MG, 45 TOTAL DOSES
     Dates: start: 20210107, end: 20210802
  2. SPRAVATO [Suspect]
     Active Substance: ESKETAMINE
     Dosage: 84 MG, TOTAL 42 DOSES
     Dates: start: 20200609, end: 20201117
  3. SPRAVATO [Suspect]
     Active Substance: ESKETAMINE
     Dosage: 84 MG, TOTAL 7 DOSES
     Dates: start: 20201124, end: 20201224
  4. SPRAVATO [Suspect]
     Active Substance: ESKETAMINE
     Dosage: 56 MG, TOTAL 1 DOSE
     Dates: start: 20201228, end: 20201228
  5. SPRAVATO [Suspect]
     Active Substance: ESKETAMINE
     Indication: DEPRESSION
     Dosage: 56 MG, TOTAL 2 DOSES
     Dates: start: 20200602, end: 20200605
  6. SPRAVATO [Suspect]
     Active Substance: ESKETAMINE
     Dosage: 56 MG, TOTAL 1 DOSE
     Dates: start: 20201119, end: 20201119

REACTIONS (7)
  - Back pain [Unknown]
  - Paranoia [Unknown]
  - Sinusitis [Unknown]
  - Leukaemia [Unknown]
  - Liver disorder [Unknown]
  - Frustration tolerance decreased [Unknown]
  - Feeling abnormal [Unknown]
